FAERS Safety Report 9036833 (Version 1)
Quarter: 2012Q4

REPORT INFORMATION
  Report Type: Spontaneous
  Country: US (occurrence: None)
  Receive Date: 20121214
  Receipt Date: 20121214
  Transmission Date: 20130627
  Serious: Yes (Death, Hospitalization)
  Sender: FDA-Public Use
  Company Number: 2012PROUSA02056

PATIENT
  Age: 69 Year
  Sex: Male
  Weight: 90.7 kg

DRUGS (10)
  1. PROVENGE (SIPULEUCEL-T) SUSPENSION, 250ML [Suspect]
     Indication: PROSTATE CANCER METASTATIC
     Dosage: 250 ml,  single,  Intravenous
     Route: 042
     Dates: start: 20120907, end: 20120907
  2. OXYCODONE (OXYCODONE) [Concomitant]
  3. TYLENOL (PARACETAMOL) [Concomitant]
  4. COMPAZINE (PROCHLORPERAZINE EDISYLATE) [Concomitant]
  5. CALCIUM WITH VITAMIN D (CALCIUM CARBONATE, COLECALCIFEROL) [Concomitant]
  6. MULTIVITAMIN (VITAMINS NOS) [Concomitant]
  7. OMEPRAZOLE (OMEPRAZOLE) [Concomitant]
  8. PREDNISONE (PREDNISONE) [Concomitant]
  9. SELENIUM (SELENIUM SULFIDE) [Concomitant]
  10. ALEVE (NAPROXEN SODIUM) [Concomitant]

REACTIONS (4)
  - Asthenia [None]
  - Renal failure acute [None]
  - Prostate cancer [None]
  - Atrial fibrillation [None]
